FAERS Safety Report 8556072-6 (Version None)
Quarter: 2012Q3

REPORT INFORMATION
  Report Type: 
  Country: None (occurrence: None)
  Receive Date: 20120719
  Receipt Date: 20120705
  Transmission Date: 20120928
  Serious: Yes (Death, Hospitalization)
  Sender: FDA-Public Use
  Company Number: DSJ-2012-12271

PATIENT
  Age: 9 Decade
  Sex: Female

DRUGS (5)
  1. CALCIUM [Concomitant]
  2. BENICAR [Suspect]
     Indication: HYPERTENSION
     Dosage: UNK (1 IN 1 D), PER ORAL
     Route: 048
     Dates: end: 20120201
  3. LEVOTHYROXINE SODIUM [Concomitant]
  4. AMIODARONE HCL [Concomitant]
  5. OTHER MEDICINES [Concomitant]

REACTIONS (1)
  - PNEUMONIA [None]
